FAERS Safety Report 4713461-5 (Version None)
Quarter: 2005Q3

REPORT INFORMATION
  Report Type: 
  Country: None (occurrence: None)
  Receive Date: 20050713
  Receipt Date: 20050707
  Transmission Date: 20060218
  Serious: Yes (Disabling)
  Sender: FDA-Public Use
  Company Number: FR-ROCHE-410066

PATIENT
  Age: 59 Year
  Sex: Female
  Weight: 61 kg

DRUGS (4)
  1. PEGASYS [Suspect]
     Dosage: FORM: PREFILLED SYRINGE.
     Route: 058
     Dates: start: 20031228, end: 20040906
  2. PEGASYS [Suspect]
     Route: 058
     Dates: start: 20040907
  3. GLEEVEC [Suspect]
     Route: 048
     Dates: start: 20031215, end: 20040810
  4. GLEEVEC [Suspect]
     Route: 048
     Dates: start: 20040823

REACTIONS (6)
  - CHEILITIS [None]
  - DERMATITIS EXFOLIATIVE [None]
  - EOSINOPHILIA [None]
  - ERYTHEMA [None]
  - FACE OEDEMA [None]
  - PRURITUS [None]
